FAERS Safety Report 8469856-X (Version None)
Quarter: 2012Q2

REPORT INFORMATION
  Report Type: 
  Country: None (occurrence: None)
  Receive Date: 20120627
  Receipt Date: 20120623
  Transmission Date: 20120825
  Serious: Yes (Other)
  Sender: FDA-Public Use
  Company Number: PHHY2012NL052090

PATIENT
  Age: 12 Month
  Sex: Male

DRUGS (10)
  1. HYDROCHLOROTHIAZIDE [Suspect]
     Dosage: 2 MG/KG, UNK
  2. SODIUM POLYSTYRENE SULFONATE [Concomitant]
     Indication: HYPERKALAEMIA
     Route: 048
  3. ADRENOCORTICOTROPHIC HORMONE [Concomitant]
  4. ATENOLOL [Concomitant]
     Dosage: 0.5 MG/KG, PER DAY
  5. MISOPROSTOL [Concomitant]
     Dosage: 400 MG, UNK
     Route: 048
  6. FUROSEMIDE [Suspect]
     Indication: HYPERTENSION
     Dosage: 0.5 MG/KG, PER DAY
  7. FUROSEMIDE [Suspect]
     Dosage: 2 MG/KG, UNK
     Route: 042
  8. AMLODIPINE [Concomitant]
     Dosage: 0.2 MG/KG, PER DAY
  9. HYDROCHLOROTHIAZIDE [Suspect]
     Dosage: 1 MEQ/KG, UNK
     Route: 048
  10. SODIUM BICARBONATE [Concomitant]
     Indication: ACIDOSIS

REACTIONS (3)
  - RENAL FAILURE CHRONIC [None]
  - DRUG INEFFECTIVE [None]
  - DEHYDRATION [None]
